FAERS Safety Report 6259259-0 (Version None)
Quarter: 2009Q3

REPORT INFORMATION
  Report Type: 
  Country: None (occurrence: None)
  Receive Date: 20090702
  Receipt Date: 20090624
  Transmission Date: 20100115
  Serious: Yes (Other)
  Sender: FDA-Public Use
  Company Number: TRP_06297_2009

PATIENT
  Sex: Male

DRUGS (2)
  1. RIBAPAK (NOT SPECIFIED) [Suspect]
     Indication: HEPATITIS C
     Dosage: DF ORAL
     Route: 048
     Dates: start: 20090403, end: 20090515
  2. PEG-INTRON [Suspect]
     Indication: HEPATITIS C
     Dosage: DF SUBCUTANEOUS
     Route: 058
     Dates: start: 20090403, end: 20090515

REACTIONS (7)
  - ANAEMIA [None]
  - DYSPNOEA [None]
  - EYE HAEMORRHAGE [None]
  - FATIGUE [None]
  - HAEMORRHAGE [None]
  - PAROSMIA [None]
  - SINUS DISORDER [None]
